FAERS Safety Report 18338307 (Version 2)
Quarter: 2020Q4

REPORT INFORMATION
  Report Type: Spontaneous
  Country: US (occurrence: US)
  Receive Date: 20201002
  Receipt Date: 20201007
  Transmission Date: 20210113
  Serious: Yes (Hospitalization, Other)
  Sender: FDA-Public Use
  Company Number: US-PFIZER INC-2020374784

PATIENT
  Sex: Female

DRUGS (1)
  1. PRISTIQ EXTENDED-RELEASE [Suspect]
     Active Substance: DESVENLAFAXINE SUCCINATE
     Dosage: UNK

REACTIONS (8)
  - Illness [Unknown]
  - Pain [Not Recovered/Not Resolved]
  - Suicidal ideation [Unknown]
  - Inflammatory marker increased [Unknown]
  - Headache [Unknown]
  - Anger [Unknown]
  - Physical assault [Unknown]
  - Agitation [Unknown]
